FAERS Safety Report 4498051-4 (Version None)
Quarter: 2004Q4

REPORT INFORMATION
  Report Type: 
  Country: None (occurrence: None)
  Receive Date: 20041109
  Receipt Date: 20041109
  Transmission Date: 20050328
  Serious: Yes (Other)
  Sender: FDA-Public Use
  Company Number: None

PATIENT
  Age: 9 Year
  Sex: Male
  Weight: 31.7518 kg

DRUGS (2)
  1. MIRALAX [Suspect]
     Indication: CONSTIPATION
     Dosage: 17G     DAY    ORAL
     Route: 048
     Dates: start: 20040906, end: 20041020
  2. MIRALAX [Suspect]
     Indication: CONSTIPATION
     Dosage: 17G     DAY    ORAL
     Route: 048
     Dates: start: 20041027, end: 20041030

REACTIONS (2)
  - ANGER [None]
  - ANXIETY [None]
